FAERS Safety Report 5646996-1 (Version None)
Quarter: 2008Q1

REPORT INFORMATION
  Report Type: 
  Country: None (occurrence: None)
  Receive Date: 20080303
  Receipt Date: 20080228
  Transmission Date: 20080703
  Serious: Yes (Hospitalization)
  Sender: FDA-Public Use
  Company Number: B0508467A

PATIENT
  Sex: Female

DRUGS (4)
  1. VALTREX [Suspect]
     Indication: HERPES SIMPLEX
     Dosage: 500MG TWICE PER DAY
     Route: 048
     Dates: start: 20080131
  2. ZOVIRAX [Suspect]
     Indication: HERPES SIMPLEX
     Route: 042
  3. TAMIFLU [Concomitant]
     Indication: INFLUENZA
     Route: 048
     Dates: start: 20080121, end: 20080125
  4. ARASENA-A [Concomitant]
     Indication: HERPES SIMPLEX
     Dates: end: 20080131

REACTIONS (5)
  - ALANINE AMINOTRANSFERASE INCREASED [None]
  - ASPARTATE AMINOTRANSFERASE INCREASED [None]
  - LIVER FUNCTION TEST ABNORMAL [None]
  - PAIN [None]
  - PYREXIA [None]
